FAERS Safety Report 13053548 (Version 1)
Quarter: 2016Q4

REPORT INFORMATION
  Report Type: Other
  Country: NZ (occurrence: NZ)
  Receive Date: 20161222
  Receipt Date: 20161222
  Transmission Date: 20170207
  Serious: Yes (Life-Threatening, Hospitalization)
  Sender: FDA-Public Use
  Company Number: NZ-LUPIN PHARMACEUTICALS INC.-2016-05614

PATIENT
  Age: 54 Year
  Sex: Female
  Weight: 75 kg

DRUGS (2)
  1. AMLODIPINE [Suspect]
     Active Substance: AMLODIPINE BESYLATE
     Indication: PRODUCT USED FOR UNKNOWN INDICATION
     Dosage: 20 TIMES DAILY DOSE
     Route: 065
  2. LOSARTAN. [Suspect]
     Active Substance: LOSARTAN
     Indication: PRODUCT USED FOR UNKNOWN INDICATION
     Dosage: 27 TIMES MAXIMUM DAILY DOSE
     Route: 065

REACTIONS (5)
  - Respiratory failure [Unknown]
  - Overdose [Unknown]
  - Acute kidney injury [Recovered/Resolved]
  - Metabolic acidosis [Unknown]
  - Hypotension [Unknown]
